FAERS Safety Report 9103523 (Version 3)
Quarter: 2014Q2

REPORT INFORMATION
  Report Type: Spontaneous
  Country: US (occurrence: US)
  Receive Date: 20130219
  Receipt Date: 20140425
  Transmission Date: 20141212
  Serious: No
  Sender: FDA-Public Use
  Company Number: US-009507513-1302USA008263

PATIENT
  Sex: Female

DRUGS (5)
  1. REBETOL [Suspect]
     Indication: HEPATITIS C
     Dosage: STRENGTH 200 MG, 3 IN THE MORNING AND 2 AT NIGHT (ALSO REPORTED AS 1 PILL, BID (TWICE A DAY))
     Route: 048
     Dates: start: 20130118, end: 201308
  2. REBETOL [Suspect]
     Dosage: STRENGTH 200 MG, 2 IN THE MORNING AND 2 AT NIGHT
     Route: 048
     Dates: start: 201308, end: 20130919
  3. REBETOL [Suspect]
     Dosage: STRENGTH 200 MG, ONE IN THE MORNING AND ONE AT NIGNT
     Route: 048
     Dates: start: 20130919, end: 20130926
  4. VICTRELIS [Suspect]
     Indication: HEPATITIS C
     Dosage: STRENGTH 200 MG, 4 PILLS, TID (THREE TIMES A DAY)
     Route: 048
     Dates: start: 20130215, end: 20130926
  5. PEGASYS [Suspect]
     Indication: HEPATITIS C
     Dosage: 180 MICROGRAM, ONCE A WEEK
     Route: 058
     Dates: start: 20130118, end: 20130919

REACTIONS (11)
  - Hepatitis C RNA increased [Unknown]
  - Haematocrit decreased [Unknown]
  - Leukopenia [Unknown]
  - White blood cell count decreased [Unknown]
  - Depression [Unknown]
  - Depressed mood [Unknown]
  - Rash [Unknown]
  - Asthenia [Unknown]
  - Platelet count decreased [Unknown]
  - Haemoglobin decreased [Unknown]
  - Fatigue [Unknown]
